FAERS Safety Report 7240794-3 (Version None)
Quarter: 2011Q1

REPORT INFORMATION
  Report Type: 
  Country: None (occurrence: None)
  Receive Date: 20110113
  Receipt Date: 20110104
  Transmission Date: 20110831
  Serious: Yes (Hospitalization, Other)
  Sender: FDA-Public Use
  Company Number: DSA_13882_2010

PATIENT
  Sex: Female
  Weight: 127.0072 kg

DRUGS (5)
  1. DIGOXIN [Suspect]
     Indication: ATRIAL FIBRILLATION
     Dosage: 250 MG QD ORAL;
     Route: 048
     Dates: start: 20100201
  2. MAGNESIUM W/ POTASSIUM [Concomitant]
  3. AVANDAMET [Suspect]
     Indication: TYPE 2 DIABETES MELLITUS
     Dosage: 1 TABLET QD, ORAL
     Route: 048
     Dates: start: 20090401, end: 20090901
  4. FRUSEMIDE [Suspect]
     Indication: PRODUCT USED FOR UNKNOWN INDICATION
     Dosage: DF
  5. CARDIZEM [Suspect]
     Indication: PRODUCT USED FOR UNKNOWN INDICATION
     Dosage: DF

REACTIONS (8)
  - DECREASED APPETITE [None]
  - TREATMENT NONCOMPLIANCE [None]
  - ELECTROLYTE IMBALANCE [None]
  - DIARRHOEA [None]
  - WEIGHT INCREASED [None]
  - ATRIAL FIBRILLATION [None]
  - FAECES HARD [None]
  - NAUSEA [None]
